FAERS Safety Report 7584820-0 (Version None)
Quarter: 2011Q2

REPORT INFORMATION
  Report Type: 
  Country: None (occurrence: None)
  Receive Date: 20110630
  Receipt Date: 20110622
  Transmission Date: 20111010
  Serious: Yes (Other)
  Sender: FDA-Public Use
  Company Number: PHHY2011IE42926

PATIENT
  Sex: Male
  Weight: 42 kg

DRUGS (2)
  1. RITALIN [Suspect]
     Dosage: 10 MG, BID
     Route: 048
     Dates: start: 20110502
  2. RITALIN [Suspect]
     Indication: ATTENTION DEFICIT/HYPERACTIVITY DISORDER
     Dosage: 5 MG, BID
     Route: 048
     Dates: start: 20110221, end: 20110502

REACTIONS (1)
  - HYPOTENSION [None]
